FAERS Safety Report 5543781-6 (Version None)
Quarter: 2007Q4

REPORT INFORMATION
  Report Type: 
  Country: None (occurrence: None)
  Receive Date: 20071206
  Receipt Date: 20071129
  Transmission Date: 20080405
  Serious: Yes (Other)
  Sender: FDA-Public Use
  Company Number: FEI2007-1597

PATIENT
  Age: 39 Year
  Sex: Female

DRUGS (1)
  1. PARAGARD T 380A [Suspect]
     Indication: CONTRACEPTION
     Dosage: INTRA-UTERINE
     Route: 015
     Dates: start: 20050601, end: 20070821

REACTIONS (3)
  - ABORTION INDUCED [None]
  - HERNIA REPAIR [None]
  - PREGNANCY WITH CONTRACEPTIVE DEVICE [None]
